FAERS Safety Report 9245711 (Version 4)
Quarter: 2013Q2

REPORT INFORMATION
  Report Type: Spontaneous
  Country: US (occurrence: US)
  Receive Date: 20130422
  Receipt Date: 20130619
  Transmission Date: 20140414
  Serious: Yes (Disabling, Other)
  Sender: FDA-Public Use
  Company Number: US-PFIZER INC-2013121117

PATIENT
  Sex: Female

DRUGS (2)
  1. GEODON [Suspect]
     Dosage: UNK
     Dates: end: 2007
  2. GEODON [Suspect]
     Dosage: UNK

REACTIONS (3)
  - Major depression [Unknown]
  - Weight increased [Unknown]
  - Anxiety [Unknown]
